FAERS Safety Report 10668915 (Version 3)
Quarter: 2015Q1

REPORT INFORMATION
  Report Type: Report from Study
  Country: US (occurrence: US)
  Receive Date: 20141222
  Receipt Date: 20150319
  Transmission Date: 20150720
  Serious: Yes (Hospitalization)
  Sender: FDA-Public Use
  Company Number: US-ALEXION-A201404773

PATIENT

DRUGS (1)
  1. SOLIRIS [Suspect]
     Active Substance: ECULIZUMAB
     Indication: PRODUCT USED FOR UNKNOWN INDICATION
     Dosage: 600 MG, QW
     Route: 042

REACTIONS (6)
  - Cholelithiasis [Not Recovered/Not Resolved]
  - Complement factor increased [Not Recovered/Not Resolved]
  - Hepatic enzyme increased [Unknown]
  - Haemoglobinuria [Recovered/Resolved]
  - Liver disorder [Not Recovered/Not Resolved]
  - Abdominal pain [Unknown]

NARRATIVE: CASE EVENT DATE: 20141211
